FAERS Safety Report 12449227 (Version 1)
Quarter: 2016Q2

REPORT INFORMATION
  Report Type: Spontaneous
  Country: US (occurrence: US)
  Receive Date: 20160608
  Receipt Date: 20160608
  Transmission Date: 20160815
  Serious: Yes (Hospitalization, Other)
  Sender: FDA-Public Use
  Company Number: US-HQ SPECIALTY-US-2016INT000357

PATIENT
  Age: 47 Year
  Sex: Male

DRUGS (7)
  1. METHOTREXATE SODIUM. [Suspect]
     Active Substance: METHOTREXATE SODIUM
     Indication: ACUTE LEUKAEMIA
     Dosage: 15 MG/M2 WITH BSA OF 2.14 ROUND TO TOTAL OF 30 MG (1 IN 1 W)
     Route: 048
  2. MERCAPTOPURINE. [Suspect]
     Active Substance: MERCAPTOPURINE
     Indication: ACUTE LEUKAEMIA
     Dosage: 90 MG/M2 WITH TOTAL OF 100 MG, (2 IN 1 D)
     Route: 048
  3. MERCAPTOPURINE. [Suspect]
     Active Substance: MERCAPTOPURINE
     Dosage: 200 MG (100 MG, 2 IN 1 D)
     Route: 048
  4. TRETINOIN. [Suspect]
     Active Substance: TRETINOIN
     Dosage: RE-STARTED
     Route: 048
  5. TRETINOIN. [Suspect]
     Active Substance: TRETINOIN
     Indication: ACUTE LEUKAEMIA
     Dosage: 45 MG/M2 WITH TOTAL OF 50 MG (FOR 15 DAYS EVERY 3 MONTHS)
     Route: 048
  6. METHOTREXATE SODIUM. [Suspect]
     Active Substance: METHOTREXATE SODIUM
     Dosage: 1.0714 MG (7.5 MG, 1 IN 1 W)
     Route: 048
  7. MERCAPTOPURINE. [Suspect]
     Active Substance: MERCAPTOPURINE
     Dosage: 25 MG, 1 D
     Route: 048

REACTIONS (10)
  - Mucosal inflammation [Unknown]
  - Bone marrow failure [Unknown]
  - Diarrhoea [Unknown]
  - Pancytopenia [Recovered/Resolved]
  - Abdominal pain upper [Unknown]
  - Abdominal pain lower [Unknown]
  - Rectal haemorrhage [Unknown]
  - Toxicity to various agents [Unknown]
  - Febrile neutropenia [Unknown]
  - Rash [Unknown]
